FAERS Safety Report 6474720-1 (Version None)
Quarter: 2009Q4

REPORT INFORMATION
  Report Type: 
  Country: None (occurrence: None)
  Receive Date: 20091204
  Receipt Date: 20091126
  Transmission Date: 20100525
  Serious: Yes (Other)
  Sender: FDA-Public Use
  Company Number: B0564532A

PATIENT
  Sex: Female

DRUGS (6)
  1. CLENIL MODULITE [Suspect]
     Indication: ASTHMA
     Dosage: 400MCG PER DAY
     Route: 055
     Dates: start: 20081114, end: 20081128
  2. VENTOLIN [Concomitant]
     Indication: ASTHMA
     Route: 055
  3. LEVOTHYROXINE SODIUM [Concomitant]
  4. CITALOPRAM HYDROBROMIDE [Concomitant]
     Dosage: 10MG PER DAY
  5. FOLIC ACID [Concomitant]
  6. BECLAZONE [Concomitant]

REACTIONS (5)
  - ABORTION SPONTANEOUS [None]
  - BLIGHTED OVUM [None]
  - COUGH [None]
  - DRUG EXPOSURE DURING PREGNANCY [None]
  - THROAT IRRITATION [None]
